FAERS Safety Report 15405476 (Version 3)
Quarter: 2020Q1

REPORT INFORMATION
  Report Type: Spontaneous
  Country: US (occurrence: US)
  Receive Date: 20180920
  Receipt Date: 20200227
  Transmission Date: 20200409
  Serious: Yes (Hospitalization)
  Sender: FDA-Public Use
  Company Number: US-HTU-2017US016886

PATIENT
  Sex: Male

DRUGS (3)
  1. VALCHLOR [Suspect]
     Active Substance: MECHLORETHAMINE
     Indication: CUTANEOUS T-CELL LYMPHOMA
     Dosage: UNK, 3-7 NIGHTS PER WEEK AS TOLERATED
     Route: 061
     Dates: start: 20170118
  2. VALCHLOR [Suspect]
     Active Substance: MECHLORETHAMINE
     Dosage: UNK
     Route: 061
     Dates: start: 20180906, end: 201910
  3. TRIAMCINOLONE ACETONIDE. [Concomitant]
     Active Substance: TRIAMCINOLONE ACETONIDE

REACTIONS (16)
  - Blister [Recovered/Resolved]
  - Application site vesicles [Recovered/Resolved]
  - Condition aggravated [Unknown]
  - Haemorrhage [Unknown]
  - Skin erosion [Recovered/Resolved]
  - Application site rash [Unknown]
  - Therapy partial responder [Unknown]
  - Pruritus [Not Recovered/Not Resolved]
  - Contusion [Unknown]
  - Skin discolouration [Unknown]
  - Erythema [Unknown]
  - Spinal operation [Unknown]
  - Skin discolouration [Not Recovered/Not Resolved]
  - Skin reaction [Not Recovered/Not Resolved]
  - Burning sensation [Unknown]
  - Application site haemorrhage [Recovered/Resolved]

NARRATIVE: CASE EVENT DATE: 2019
